FAERS Safety Report 10751545 (Version 1)
Quarter: 2015Q1

REPORT INFORMATION
  Report Type: Spontaneous
  Country: US (occurrence: None)
  Receive Date: 20150126
  Receipt Date: 20150126
  Transmission Date: 20150721
  Serious: Yes (Other)
  Sender: FDA-Public Use
  Company Number: MC201300221

PATIENT
  Age: 44 Year
  Sex: Male
  Weight: 90.24 kg

DRUGS (2)
  1. CLOPIDOGREL [Concomitant]
     Active Substance: CLOPIDOGREL BISULFATE
  2. ANGIOMAX [Suspect]
     Active Substance: BIVALIRUDIN
     Indication: PERCUTANEOUS CORONARY INTERVENTION
     Dosage: 13.6 CC
     Route: 040

REACTIONS (3)
  - Chest pain [None]
  - Thrombosis in device [None]
  - Electrocardiogram change [None]

NARRATIVE: CASE EVENT DATE: 20130404
